FAERS Safety Report 16396453 (Version 1)
Quarter: 2019Q2

REPORT INFORMATION
  Report Type: Spontaneous
  Country: TR (occurrence: TR)
  Receive Date: 20190605
  Receipt Date: 20190605
  Transmission Date: 20190711
  Serious: Yes (Other)
  Sender: FDA-Public Use
  Company Number: TR-FRESENIUS KABI-FK201906275

PATIENT
  Age: 68 Year
  Sex: Male

DRUGS (1)
  1. BUPIVACAINE (MANUFACTURER UNKNOWN) [Suspect]
     Active Substance: BUPIVACAINE
     Indication: NERVE BLOCK
     Dosage: 5 ML OF 0,5 PERCENT
     Route: 065

REACTIONS (2)
  - Cerebral infarction [Unknown]
  - Local anaesthetic systemic toxicity [Recovering/Resolving]
